FAERS Safety Report 9551079 (Version 2)
Quarter: 2013Q4

REPORT INFORMATION
  Report Type: Spontaneous
  Country: US (occurrence: US)
  Receive Date: 20130925
  Receipt Date: 20131215
  Transmission Date: 20140711
  Serious: Yes (Other)
  Sender: FDA-Public Use
  Company Number: US-JNJFOC-20130907377

PATIENT
  Sex: Female

DRUGS (3)
  1. BENADRYL [Suspect]
     Indication: EYE SWELLING
     Route: 048
  2. BENADRYL [Suspect]
     Indication: PRURITUS
     Route: 048
  3. REMICADE [Concomitant]
     Indication: CROHN^S DISEASE
     Route: 065

REACTIONS (2)
  - Dyspnoea [Recovered/Resolved]
  - Drug ineffective for unapproved indication [Recovered/Resolved]
